FAERS Safety Report 8237469-0 (Version None)
Quarter: 2012Q1

REPORT INFORMATION
  Report Type: 
  Country: None (occurrence: None)
  Receive Date: 20120327
  Receipt Date: 20120319
  Transmission Date: 20120608
  Serious: Yes (Other)
  Sender: FDA-Public Use
  Company Number: PHHY2012GB023912

PATIENT
  Age: 61 Year
  Sex: Female

DRUGS (4)
  1. CARBOPLATIN [Suspect]
     Indication: OVARIAN CANCER
     Dosage: 575 MG, UNK
     Route: 042
     Dates: start: 20120205, end: 20120205
  2. CARBOPLATIN [Suspect]
     Indication: BREAST CANCER
     Dosage: 575 MG, UNK
     Route: 042
     Dates: start: 20120205, end: 20120205
  3. CHLORPHENIRAMINE MALEATE [Concomitant]
  4. GEMCITABINE [Concomitant]
     Dosage: 1600 MG, UNK
     Route: 042

REACTIONS (5)
  - EYE SWELLING [None]
  - ANAPHYLACTIC REACTION [None]
  - CARDIAC ARREST [None]
  - CIRCULATORY COLLAPSE [None]
  - UNRESPONSIVE TO STIMULI [None]
